FAERS Safety Report 4768219-8 (Version None)
Quarter: 2005Q3

REPORT INFORMATION
  Report Type: 
  Country: None (occurrence: None)
  Receive Date: 20050913
  Receipt Date: 20050829
  Transmission Date: 20060218
  Serious: Yes (Other)
  Sender: FDA-Public Use
  Company Number: 2005S1005291

PATIENT
  Age: 61 Year
  Sex: Male
  Weight: 123.3784 kg

DRUGS (6)
  1. FENTANYL [Suspect]
     Indication: ARTHRALGIA
     Dosage: 100 MCG/HR; Q3D; TDER
     Route: 062
     Dates: start: 20050604
  2. FENTANYL [Suspect]
     Indication: BONE PAIN
     Dosage: 100 MCG/HR; Q3D; TDER
     Route: 062
     Dates: start: 20050604
  3. FLUOXETINE HYDROCHLORIDE [Concomitant]
  4. BUPROPION HYDROCHLORIDE [Concomitant]
  5. VALPROATE SODIUM [Concomitant]
  6. PRABASTATIN SODIUM [Concomitant]

REACTIONS (8)
  - AGITATION [None]
  - DRUG EFFECT DECREASED [None]
  - FEELING HOT AND COLD [None]
  - HYPERHIDROSIS [None]
  - INADEQUATE ANALGESIA [None]
  - INSOMNIA [None]
  - MUSCLE TWITCHING [None]
  - PHARMACEUTICAL PRODUCT COMPLAINT [None]
